FAERS Safety Report 5222423-3 (Version None)
Quarter: 2007Q1

REPORT INFORMATION
  Report Type: 
  Country: None (occurrence: None)
  Receive Date: 20070129
  Receipt Date: 20070123
  Transmission Date: 20070707
  Serious: Yes (Hospitalization)
  Sender: FDA-Public Use
  Company Number: JP-ALLERGAN-0606661US

PATIENT
  Sex: Female

DRUGS (9)
  1. ALESION TABLET [Suspect]
     Indication: PRURITUS
     Route: 048
     Dates: start: 20060628, end: 20060709
  2. MUCOSAL-L [Concomitant]
     Indication: BRONCHITIS CHRONIC
     Dosage: UNK, UNK
     Route: 048
  3. RENAGEL                            /01459901/ [Concomitant]
     Indication: BLOOD PHOSPHORUS INCREASED
     Dosage: UNK, UNK
     Route: 048
  4. FULSTAN [Concomitant]
     Indication: HYPERPARATHYROIDISM SECONDARY
     Dosage: UNK, UNK
     Route: 048
  5. WASSER V GRAN. [Concomitant]
     Indication: PRURITUS
     Dosage: 2 G, UNK
     Route: 048
  6. CALTRAN [Concomitant]
     Indication: BLOOD PHOSPHORUS INCREASED
     Dosage: UNK, UNK
     Route: 048
  7. EPOGEN [Concomitant]
     Indication: NEPHROGENIC ANAEMIA
     Route: 042
  8. ELCITONIN [Concomitant]
     Indication: OSTEOPOROSIS
     Route: 042
  9. STOGAR [Concomitant]
     Indication: GASTRIC ULCER
     Dosage: 20 MG, UNK
     Route: 048

REACTIONS (1)
  - HEPATIC FUNCTION ABNORMAL [None]
